FAERS Safety Report 21166461 (Version 1)
Quarter: 2022Q3

REPORT INFORMATION
  Report Type: Spontaneous
  Country: JP (occurrence: JP)
  Receive Date: 20220803
  Receipt Date: 20220803
  Transmission Date: 20221026
  Serious: Yes (Life-Threatening, Other)
  Sender: FDA-Public Use
  Company Number: JP-PFIZER INC-202201021564

PATIENT
  Age: 52 Year
  Sex: Female

DRUGS (1)
  1. MEROPENEM [Suspect]
     Active Substance: MEROPENEM
     Indication: Stenotrophomonas infection
     Dosage: UNK

REACTIONS (2)
  - Off label use [Unknown]
  - Drug ineffective for unapproved indication [Unknown]
